FAERS Safety Report 9157727 (Version 1)
Quarter: 2013Q1

REPORT INFORMATION
  Report Type: Spontaneous
  Country: DK (occurrence: None)
  Receive Date: 20130213
  Receipt Date: 20130213
  Transmission Date: 20140127
  Serious: Yes (Other)
  Sender: FDA-Public Use
  Company Number: 2013MA00048

PATIENT
  Age: 73 Year
  Sex: Female

DRUGS (9)
  1. GEMCITABINE HYDROCHLORIDE FOR INJECTION USP 1000MG/VIAL (ATLLC) (GEMCITABINE) [Suspect]
     Dosage: 1500 MG; IV NOS
     Route: 042
     Dates: start: 20121109, end: 20130122
  2. CARBOPLATIN (CARBOPLATIN) [Suspect]
     Dosage: 350 MG; IV NOS
     Route: 042
     Dates: start: 20121110, end: 20121205
  3. MODURETIC [Concomitant]
  4. CLEXANE [Concomitant]
  5. ZARELIS [Concomitant]
  6. TAVOR [Concomitant]
  7. LAEVOLAC [Concomitant]
  8. TAXOL [Concomitant]
  9. CARBOPLATIN [Concomitant]

REACTIONS (4)
  - Abdominal pain [None]
  - Paraesthesia [None]
  - Hyperhidrosis [None]
  - Vomiting [None]
